FAERS Safety Report 5929989-6 (Version None)
Quarter: 2008Q4

REPORT INFORMATION
  Report Type: 
  Country: None (occurrence: None)
  Receive Date: 20081024
  Receipt Date: 20081014
  Transmission Date: 20090506
  Serious: Yes (Hospitalization)
  Sender: FDA-Public Use
  Company Number: AU-PFIZER INC-2008079181

PATIENT
  Sex: Female

DRUGS (3)
  1. ZOLOFT [Suspect]
     Indication: DEPRESSION
     Dates: start: 20080625
  2. MAXOLON [Concomitant]
     Dates: start: 20080415
  3. RANI 2 [Concomitant]

REACTIONS (3)
  - DISCOMFORT [None]
  - PREMATURE LABOUR [None]
  - UTERINE DISORDER [None]
